FAERS Safety Report 19961571 (Version 2)
Quarter: 2022Q1

REPORT INFORMATION
  Report Type: Spontaneous
  Country: JP (occurrence: JP)
  Receive Date: 20211017
  Receipt Date: 20220308
  Transmission Date: 20220423
  Serious: Yes (Hospitalization)
  Sender: FDA-Public Use
  Company Number: JP-NOVARTISPH-NVSJ2021JP014702

PATIENT
  Age: 47 Year
  Sex: Female
  Weight: 56.7 kg

DRUGS (5)
  1. COSENTYX [Suspect]
     Active Substance: SECUKINUMAB
     Indication: Psoriatic arthropathy
     Dosage: 150 MG
     Route: 058
     Dates: start: 20210720, end: 20210816
  2. COSENTYX [Suspect]
     Active Substance: SECUKINUMAB
     Indication: Ankylosing spondylitis
  3. COSENTYX [Suspect]
     Active Substance: SECUKINUMAB
     Indication: Psoriasis
  4. COSENTYX [Suspect]
     Active Substance: SECUKINUMAB
     Indication: Rash
  5. METHOTREXATE [Concomitant]
     Active Substance: METHOTREXATE
     Indication: Arthritis
     Dosage: 6 MG
     Route: 048
     Dates: start: 20160121

REACTIONS (12)
  - Pharyngitis [Not Recovered/Not Resolved]
  - Pharyngeal oedema [Not Recovered/Not Resolved]
  - Laryngitis [Recovering/Resolving]
  - Laryngeal oedema [Recovering/Resolving]
  - Oropharyngeal pain [Recovering/Resolving]
  - Tonsillitis [Unknown]
  - Dysphonia [Unknown]
  - Pyrexia [Unknown]
  - Hypophagia [Unknown]
  - Oral mucosal eruption [Recovering/Resolving]
  - Diarrhoea [Unknown]
  - Arthralgia [Unknown]

NARRATIVE: CASE EVENT DATE: 20210816
